FAERS Safety Report 10993115 (Version 1)
Quarter: 2015Q2

REPORT INFORMATION
  Report Type: Spontaneous
  Country: ZA (occurrence: ZA)
  Receive Date: 20150407
  Receipt Date: 20150407
  Transmission Date: 20150821
  Serious: Yes (Hospitalization)
  Sender: FDA-Public Use
  Company Number: PHHY2015ZA035266

PATIENT
  Age: 5 Year
  Sex: Female

DRUGS (1)
  1. RITALIN [Suspect]
     Active Substance: METHYLPHENIDATE HYDROCHLORIDE
     Indication: ATTENTION DEFICIT/HYPERACTIVITY DISORDER
     Dosage: 5 MG, UNK
     Route: 048
     Dates: start: 20150312, end: 20150316

REACTIONS (7)
  - Pain in extremity [Recovering/Resolving]
  - Cough [Recovering/Resolving]
  - Skin reaction [Recovering/Resolving]
  - Rash [Recovering/Resolving]
  - Influenza like illness [Recovering/Resolving]
  - Abasia [Recovering/Resolving]
  - Skin exfoliation [Recovering/Resolving]

NARRATIVE: CASE EVENT DATE: 20150314
